FAERS Safety Report 7339034-6 (Version None)
Quarter: 2011Q1

REPORT INFORMATION
  Report Type: 
  Country: None (occurrence: None)
  Receive Date: 20110308
  Receipt Date: 20110223
  Transmission Date: 20110831
  Serious: Yes (Hospitalization)
  Sender: FDA-Public Use
  Company Number: FR-ELI_LILLY_AND_COMPANY-FR201102007543

PATIENT
  Sex: Female

DRUGS (2)
  1. AUGMENTIN '125' [Concomitant]
     Indication: BRONCHITIS
     Dosage: 1 G, DAILY (1/D)
     Route: 048
     Dates: start: 20080331, end: 20080404
  2. CYMBALTA [Suspect]
     Indication: DEPRESSION
     Dosage: 30 MG, DAILY (1/D)
     Route: 048
     Dates: start: 20080315, end: 20080407

REACTIONS (4)
  - RASH MACULAR [None]
  - TOXIC SKIN ERUPTION [None]
  - DERMATITIS EXFOLIATIVE [None]
  - URTICARIA [None]
